FAERS Safety Report 6132684-4 (Version None)
Quarter: 2009Q1

REPORT INFORMATION
  Report Type: 
  Country: None (occurrence: None)
  Receive Date: 20090326
  Receipt Date: 20090312
  Transmission Date: 20090719
  Serious: Yes (Hospitalization)
  Sender: FDA-Public Use
  Company Number: US-RANBAXY-2009RR-22190

PATIENT
  Age: 51 Year
  Sex: Female

DRUGS (13)
  1. FUROSEMIDE TABLET [Suspect]
     Indication: FLUID OVERLOAD
     Dosage: 120 MG, TID
     Route: 042
  2. FUROSEMIDE TABLET [Suspect]
     Dosage: 80 MG, TID
     Route: 042
  3. FUROSEMIDE TABLET [Suspect]
     Dosage: 80 MG, BID
     Route: 042
  4. FUROSEMIDE TABLET [Suspect]
     Dosage: 60 MG, TID
     Route: 042
  5. CEFTRIAXONE [Concomitant]
     Dosage: 2 G, QD
     Route: 042
  6. CASPOFUNGIN [Concomitant]
     Dosage: 50 MG, QD
  7. CASPOFUNGIN [Concomitant]
     Dosage: 70 MG, QD
  8. METRONIDAZOLE [Concomitant]
     Dosage: 500 MG, TID
  9. LEVOFLOXACIN [Concomitant]
     Dosage: 500 MG, UNK
     Route: 042
  10. LEVOFLOXACIN [Concomitant]
     Dosage: 250 MG, UNK
     Route: 042
  11. LINEZOLID [Concomitant]
     Dosage: 600 MG, BID
  12. PIPERACILLIN SODIUM AND TAZOBACTAM SODIUM [Concomitant]
     Dosage: 2.25 G, TID
  13. WARFARIN SODIUM [Concomitant]
     Indication: ANTICOAGULANT THERAPY

REACTIONS (1)
  - DEAFNESS NEUROSENSORY [None]
